FAERS Safety Report 22324915 (Version 4)
Quarter: 2023Q2

REPORT INFORMATION
  Report Type: Spontaneous
  Country: DE (occurrence: DE)
  Receive Date: 20230516
  Receipt Date: 20230623
  Transmission Date: 20230722
  Serious: Yes (Hospitalization, Disabling, Other)
  Sender: FDA-Public Use
  Company Number: DE-Gedeon Richter Plc.-2023_GR_004106

PATIENT
  Age: 38 Year
  Sex: Female
  Weight: 72 kg

DRUGS (5)
  1. ESTRADIOL\NORETHINDRONE ACETATE\RELUGOLIX [Suspect]
     Active Substance: ESTRADIOL\NORETHINDRONE ACETATE\RELUGOLIX
     Indication: Adenomyosis
     Dosage: ONE DOSAGE FORM ONCE DAILY (1-0-0)
     Route: 048
     Dates: start: 20230128
  2. ESTRADIOL\NORETHINDRONE ACETATE\RELUGOLIX [Suspect]
     Active Substance: ESTRADIOL\NORETHINDRONE ACETATE\RELUGOLIX
     Indication: Uterine leiomyoma
  3. PROPOFOL [Concomitant]
     Active Substance: PROPOFOL
     Indication: Sedation
     Dosage: UNK
     Route: 065
  4. BISOPROLOL [Concomitant]
     Active Substance: BISOPROLOL
     Indication: Sinus tachycardia
     Dosage: 1.25 MILLIGRAM
     Route: 065
  5. BISOPROLOL [Concomitant]
     Active Substance: BISOPROLOL
     Indication: Arrhythmia

REACTIONS (6)
  - Superficial vein thrombosis [Not Recovered/Not Resolved]
  - Gastrointestinal haemorrhage [Unknown]
  - Adverse drug reaction [Unknown]
  - Hypercholesterolaemia [Unknown]
  - Thrombophlebitis [Not Recovered/Not Resolved]
  - Angiopathy [Unknown]

NARRATIVE: CASE EVENT DATE: 20230427
